FAERS Safety Report 23509221 (Version 1)
Quarter: 2024Q1

REPORT INFORMATION
  Report Type: Spontaneous
  Country: US (occurrence: None)
  Receive Date: 20240209
  Receipt Date: 20240209
  Transmission Date: 20240410
  Serious: No
  Sender: FDA-Public Use
  Company Number: None

PATIENT
  Age: 44 Year
  Sex: Female
  Weight: 69.4 kg

DRUGS (1)
  1. VENOFER [Suspect]
     Active Substance: IRON SUCROSE
     Indication: Iron deficiency anaemia
     Dosage: OTHER FREQUENCY : ONCE;?
     Route: 042
     Dates: start: 20240208, end: 20240208

REACTIONS (4)
  - Hypersensitivity [None]
  - Infusion related reaction [None]
  - Paraesthesia [None]
  - Therapy cessation [None]

NARRATIVE: CASE EVENT DATE: 20240208
